FAERS Safety Report 7480342-6 (Version None)
Quarter: 2011Q2

REPORT INFORMATION
  Report Type: 
  Country: None (occurrence: None)
  Receive Date: 20110512
  Receipt Date: 20110512
  Transmission Date: 20111010
  Serious: No
  Sender: FDA-Public Use
  Company Number: None

PATIENT
  Age: 42 Year
  Sex: Female
  Weight: 67.1324 kg

DRUGS (1)
  1. DROSPIRENONE AND ETHINYL ESTRADIOL [Suspect]
     Indication: CONTRACEPTION
     Dosage: 1 DAILY UNK
     Dates: start: 20110304, end: 20110403

REACTIONS (9)
  - DEHYDRATION [None]
  - IRRITABILITY [None]
  - VOMITING [None]
  - MENORRHAGIA [None]
  - MALAISE [None]
  - ABDOMINAL PAIN UPPER [None]
  - WEIGHT INCREASED [None]
  - MUSCLE SPASMS [None]
  - MIGRAINE [None]
